FAERS Safety Report 25767705 (Version 2)
Quarter: 2025Q3

REPORT INFORMATION
  Report Type: Spontaneous
  Country: US (occurrence: US)
  Receive Date: 20250905
  Receipt Date: 20250908
  Transmission Date: 20251021
  Serious: Yes (Other)
  Sender: PFIZER
  Company Number: US-PFIZER INC-202500175123

PATIENT
  Age: 85 Year
  Sex: Male

DRUGS (1)
  1. XELJANZ [Suspect]
     Active Substance: TOFACITINIB CITRATE
     Dosage: 15 MG, 2X/DAY (ONE IN THE MORNING AND ONE AT NIGHT)

REACTIONS (10)
  - Immunosuppression [Not Recovered/Not Resolved]
  - Nasal congestion [Unknown]
  - Therapeutic product effect decreased [Unknown]
  - Dyspnoea [Unknown]
  - Insomnia [Unknown]
  - Night sweats [Unknown]
  - Chest discomfort [Unknown]
  - Oral candidiasis [Not Recovered/Not Resolved]
  - Off label use [Unknown]
  - Intentional product misuse [Unknown]

NARRATIVE: CASE EVENT DATE: 20250101
